FAERS Safety Report 5580701-2 (Version None)
Quarter: 2007Q4

REPORT INFORMATION
  Report Type: 
  Country: None (occurrence: None)
  Receive Date: 20071228
  Receipt Date: 20071221
  Transmission Date: 20080405
  Serious: Yes (Death, Hospitalization)
  Sender: FDA-Public Use
  Company Number: 16203

PATIENT
  Age: 65 Year
  Sex: Female

DRUGS (11)
  1. CYTARABINE [Suspect]
     Indication: ACUTE MYELOID LEUKAEMIA
     Dosage: 28 MG PER_CYCLE SC
     Route: 058
     Dates: start: 20061102, end: 20070125
  2. RIFATAR [Concomitant]
  3. ETHAMBUTOL HYDROCHLORIDE [Concomitant]
  4. PYRIDOXINE HYDROCHLORIDE [Concomitant]
  5. NYSTATIN [Concomitant]
  6. SENNOSIDE B [Concomitant]
  7. METFORMIN HCL [Concomitant]
  8. INDOMETHACIN [Concomitant]
  9. ISONIAZID [Concomitant]
  10. DEXAMETHASONE TAB [Concomitant]
  11. DOMPERIDONE [Concomitant]

REACTIONS (9)
  - CONDITION AGGRAVATED [None]
  - FEBRILE NEUTROPENIA [None]
  - LUNG INFECTION [None]
  - LYMPHADENOPATHY [None]
  - MASS [None]
  - ORAL CANDIDIASIS [None]
  - PHARYNGITIS [None]
  - SEPTIC SHOCK [None]
  - TONSILLITIS [None]
